FAERS Safety Report 9793210 (Version 2)
Quarter: 2014Q1

REPORT INFORMATION
  Report Type: Spontaneous
  Country: FR (occurrence: FR)
  Receive Date: 20140102
  Receipt Date: 20140106
  Transmission Date: 20141002
  Serious: Yes (Death, Hospitalization)
  Sender: FDA-Public Use
  Company Number: FR-B.I. PHARMACEUTICALS,INC./RIDGEFIELD-2013-BI-44183FF

PATIENT
  Age: 77 Year
  Sex: Male
  Weight: 70.8 kg

DRUGS (8)
  1. PRADAXA [Suspect]
     Indication: ATRIAL FIBRILLATION
     Dosage: 220 MG
     Route: 048
     Dates: start: 201210, end: 20131207
  2. LASILIX 500 [Concomitant]
     Dosage: 750 MG
     Route: 048
     Dates: start: 20130725
  3. ALDACTONE [Concomitant]
     Dosage: 25 MG
     Route: 048
     Dates: start: 20130725
  4. ORACILLINE [Concomitant]
     Route: 048
     Dates: start: 20130725
  5. ANDRACTRIM [Concomitant]
  6. MELPHALAN [Concomitant]
     Dates: end: 20130925
  7. DEXAMETHASONE [Concomitant]
     Dates: end: 20130925
  8. VALACICLOVIR [Concomitant]
     Dosage: 500 MG
     Route: 048
     Dates: start: 20130725

REACTIONS (3)
  - Rectal haemorrhage [Fatal]
  - Melaena [Fatal]
  - Cardio-respiratory arrest [Fatal]
